FAERS Safety Report 8626796 (Version 3)
Quarter: 2013Q2

REPORT INFORMATION
  Report Type: Report from Study
  Country: NL (occurrence: NL)
  Receive Date: 20120620
  Receipt Date: 20130617
  Transmission Date: 20140414
  Serious: Yes (Hospitalization)
  Sender: FDA-Public Use
  Company Number: NL-AMGEN-NLDCT2012036241

PATIENT
  Age: 62 Year
  Sex: Female
  Weight: 73.6 kg

DRUGS (22)
  1. BLINDED DENOSUMAB [Suspect]
     Indication: BREAST CANCER
     Dosage: UNK
     Route: 058
     Dates: start: 20120410
  2. BLINDED PLACEBO [Suspect]
     Indication: BREAST CANCER
     Dosage: UNK
     Route: 058
     Dates: start: 20120410
  3. NEULASTA [Suspect]
     Indication: FEBRILE NEUTROPENIA
     Dosage: 6 MG, UNK
     Route: 058
     Dates: start: 20120525, end: 20120525
  4. NEULASTA [Suspect]
     Indication: PROPHYLAXIS
  5. CYCLOPHOSPHAMIDE [Concomitant]
     Indication: BREAST CANCER
     Dosage: 900 MG, UNK
     Route: 042
     Dates: start: 20120322, end: 20120503
  6. FLUOROURACIL [Concomitant]
     Indication: BREAST CANCER
     Dosage: 900 MG, UNK
     Route: 042
     Dates: start: 20120322, end: 20120503
  7. EPIRUBICIN [Concomitant]
     Indication: BREAST CANCER
     Dosage: 180 MG, UNK
     Route: 042
     Dates: start: 20120322, end: 20120503
  8. CALCIUM [Concomitant]
     Dosage: 1200 MUG, UNK
     Route: 048
     Dates: start: 20120410
  9. VITAMIN D3 [Concomitant]
     Dosage: 800 IU, UNK
     Route: 048
     Dates: start: 20120410
  10. GRANISETRON [Concomitant]
     Indication: NAUSEA
     Dosage: 2 MG, UNK
     Route: 048
     Dates: start: 20120322, end: 20120616
  11. GRANISETRON [Concomitant]
     Indication: PROPHYLAXIS
  12. DEXAMETHASONE [Concomitant]
     Indication: PROPHYLAXIS
     Dosage: 8 MG, UNK
     Route: 048
     Dates: start: 20120523, end: 20120615
  13. DOCETAXEL [Concomitant]
     Dosage: 180 MG, UNK
     Route: 042
     Dates: start: 20120524
  14. PANTOPRAZOL [Concomitant]
     Indication: DYSPEPSIA
     Dosage: 40 MG, UNK
     Route: 048
     Dates: start: 20120515
  15. MOVICOLON [Concomitant]
     Indication: CONSTIPATION
     Dosage: UNK
     Route: 048
     Dates: start: 20120528
  16. MOVICOLON [Concomitant]
     Indication: PROPHYLAXIS
  17. MORPHINE SULFATE [Concomitant]
     Indication: BONE PAIN
     Dosage: 5 MG, UNK
     Route: 048
     Dates: start: 20120528, end: 20120605
  18. LYRICA [Concomitant]
     Indication: NEURALGIA
     Dosage: 75 MG, UNK
     Route: 048
     Dates: start: 20110601, end: 20130422
  19. LYRICA [Concomitant]
     Indication: PROPHYLAXIS
  20. LYRICA [Concomitant]
     Indication: POLYNEUROPATHY
  21. PARACETAMOL [Concomitant]
     Indication: PAIN
     Dosage: 500 MG, UNK
     Route: 048
     Dates: start: 20110601
  22. PARACETAMOL [Concomitant]
     Indication: PROPHYLAXIS

REACTIONS (1)
  - Toxic skin eruption [Recovered/Resolved]
